FAERS Safety Report 6412276-X (Version None)
Quarter: 2009Q4

REPORT INFORMATION
  Report Type: 
  Country: None (occurrence: None)
  Receive Date: 20091023
  Receipt Date: 20091014
  Transmission Date: 20100525
  Serious: Yes (Death, Hospitalization, Other)
  Sender: FDA-Public Use
  Company Number: CA-AVENTIS-200921775GDDC

PATIENT
  Age: 63 Year
  Sex: Male

DRUGS (5)
  1. GLYBURIDE [Suspect]
  2. GLYBURIDE [Suspect]
  3. LEVOTHYROXINE SODIUM [Suspect]
     Indication: HYPOTHYROIDISM
  4. CLOZAPINE [Suspect]
     Indication: SCHIZOPHRENIA
  5. DOCUSATE SODIUM [Suspect]
     Indication: CONSTIPATION

REACTIONS (6)
  - CIRCULATORY COLLAPSE [None]
  - CONSTIPATION [None]
  - LARGE INTESTINAL OBSTRUCTION [None]
  - MULTI-ORGAN FAILURE [None]
  - MYOCLONUS [None]
  - SALIVARY HYPERSECRETION [None]
